FAERS Safety Report 7161902-9 (Version None)
Quarter: 2010Q4

REPORT INFORMATION
  Report Type: 
  Country: None (occurrence: None)
  Receive Date: 20101215
  Receipt Date: 20100715
  Transmission Date: 20110411
  Serious: Yes (Other)
  Sender: FDA-Public Use
  Company Number: GB-PFIZER INC-2010088884

PATIENT
  Age: 79 Year
  Sex: Female

DRUGS (2)
  1. LYRICA [Suspect]
     Dosage: 50 MG, UNK
     Route: 048
     Dates: start: 20100705
  2. TRAMADOL [Concomitant]
     Indication: PAIN
     Dosage: 50 MG, UNK
     Route: 048
     Dates: end: 20100705

REACTIONS (3)
  - DISORIENTATION [None]
  - FEELING ABNORMAL [None]
  - IMPAIRED DRIVING ABILITY [None]
